FAERS Safety Report 17647236 (Version 1)
Quarter: 2020Q2

REPORT INFORMATION
  Report Type: Spontaneous
  Country: US (occurrence: US)
  Receive Date: 20200408
  Receipt Date: 20200408
  Transmission Date: 20200713
  Serious: No
  Sender: FDA-Public Use
  Company Number: US-OPTINOSE US, INC-2020OPT000174

PATIENT
  Age: 56 Year
  Sex: Male
  Weight: 109.87 kg

DRUGS (2)
  1. XHANCE [Suspect]
     Active Substance: FLUTICASONE PROPIONATE
     Indication: MULTIPLE ALLERGIES
     Route: 045
     Dates: start: 2019
  2. LISINOPRIL. [Concomitant]
     Active Substance: LISINOPRIL
     Indication: BLOOD PRESSURE INCREASED
     Route: 048

REACTIONS (4)
  - Device breakage [Unknown]
  - Product use in unapproved indication [Unknown]
  - Prescribed underdose [Unknown]
  - Wound [Unknown]

NARRATIVE: CASE EVENT DATE: 2019
